FAERS Safety Report 7691199-2 (Version None)
Quarter: 2011Q3

REPORT INFORMATION
  Report Type: 
  Country: None (occurrence: None)
  Receive Date: 20110818
  Receipt Date: 20101012
  Transmission Date: 20111222
  Serious: No
  Sender: FDA-Public Use
  Company Number: CA-BAYER-201038321NA

PATIENT
  Sex: Female

DRUGS (1)
  1. ANGELIQ [Suspect]

REACTIONS (5)
  - DIZZINESS [None]
  - HEART RATE INCREASED [None]
  - MIGRAINE [None]
  - HEADACHE [None]
  - SPEECH DISORDER [None]
